FAERS Safety Report 22856883 (Version 2)
Quarter: 2023Q4

REPORT INFORMATION
  Report Type: Spontaneous
  Country: US (occurrence: US)
  Receive Date: 20230823
  Receipt Date: 20231117
  Transmission Date: 20240109
  Serious: No
  Sender: FDA-Public Use
  Company Number: US-Stemline Therapeutics, Inc.-2023ST001864

PATIENT
  Age: 81 Year
  Sex: Female

DRUGS (3)
  1. ORSERDU [Suspect]
     Active Substance: ELACESTRANT
     Indication: Product used for unknown indication
     Dosage: 1 MG, ONCE A DAY
     Route: 048
     Dates: start: 20230705, end: 20230709
  2. ORSERDU [Suspect]
     Active Substance: ELACESTRANT
     Route: 048
     Dates: end: 20230809
  3. ORSERDU [Suspect]
     Active Substance: ELACESTRANT
     Route: 048

REACTIONS (6)
  - Therapy cessation [Not Recovered/Not Resolved]
  - Feeling abnormal [Unknown]
  - Gastrointestinal disorder [Unknown]
  - Illness [Unknown]
  - Vomiting [Unknown]
  - Nausea [Unknown]

NARRATIVE: CASE EVENT DATE: 20230709
